FAERS Safety Report 19883219 (Version 1)
Quarter: 2021Q3

REPORT INFORMATION
  Report Type: Spontaneous
  Country: US (occurrence: US)
  Receive Date: 20210926
  Receipt Date: 20210926
  Transmission Date: 20211014
  Serious: No
  Sender: FDA-Public Use
  Company Number: US-SA-2021SA314189

PATIENT
  Age: 45 Year
  Sex: Female

DRUGS (1)
  1. DUPIXENT [Suspect]
     Active Substance: DUPILUMAB
     Dosage: 300 MG (FREQUENCY: OTHER )
     Route: 058
     Dates: start: 202106

REACTIONS (2)
  - Eyelid exfoliation [Unknown]
  - Eye irritation [Unknown]

NARRATIVE: CASE EVENT DATE: 20210722
